FAERS Safety Report 17190647 (Version 2)
Quarter: 2020Q1

REPORT INFORMATION
  Report Type: Spontaneous
  Country: US (occurrence: US)
  Receive Date: 20191223
  Receipt Date: 20200227
  Transmission Date: 20200409
  Serious: No
  Sender: FDA-Public Use
  Company Number: US-009507513-1912USA003141

PATIENT
  Age: 25 Year
  Sex: Male
  Weight: 79.37 kg

DRUGS (1)
  1. PREGNYL [Suspect]
     Active Substance: CHORIOGONADOTROPIN ALFA
     Indication: MALE ORGASMIC DISORDER
     Dosage: 1500 INTERNATIONAL UNIT
     Route: 058

REACTIONS (1)
  - Off label use [Unknown]
